FAERS Safety Report 20681369 (Version 1)
Quarter: 2022Q2

REPORT INFORMATION
  Report Type: Spontaneous
  Country: US (occurrence: US)
  Receive Date: 20220406
  Receipt Date: 20220406
  Transmission Date: 20220721
  Serious: No
  Sender: FDA-Public Use
  Company Number: US-SA-SAC20220405000833

PATIENT
  Age: 42 Year
  Sex: Female

DRUGS (12)
  1. DUPIXENT [Suspect]
     Active Substance: DUPILUMAB
     Indication: Status asthmaticus
     Dosage: 300 MG, QOW
     Route: 058
     Dates: start: 202201
  2. DUPIXENT [Suspect]
     Active Substance: DUPILUMAB
     Indication: Idiopathic urticaria
  3. OMEPRAZOLE [Concomitant]
     Active Substance: OMEPRAZOLE
  4. MOMETASONE FUROATE [Concomitant]
     Active Substance: MOMETASONE FUROATE
  5. MODERNA COVID-19 VACCINE [Concomitant]
     Active Substance: ELASOMERAN
  6. ALBUTEROL SULFATE [Concomitant]
     Active Substance: ALBUTEROL SULFATE
  7. SINGULAIR [Concomitant]
     Active Substance: MONTELUKAST SODIUM
  8. CLARITIN-D NOS [Concomitant]
     Active Substance: LORATADINE\PSEUDOEPHEDRINE SULFATE
     Dosage: (CLARITIN-D 12 HOUR )
  9. ZYRTEC [Concomitant]
     Active Substance: CETIRIZINE HYDROCHLORIDE
  10. ADVAIR HFA [Concomitant]
     Active Substance: FLUTICASONE PROPIONATE\SALMETEROL XINAFOATE
     Dosage: (ADVAIR HFA 115-21MCG HFA AER)
  11. PROBIOTIC ACIDOPHILUS [LACTOBACILLUS ACIDOPHILUS] [Concomitant]
  12. ALBUTEROL SULFATE [Concomitant]
     Active Substance: ALBUTEROL SULFATE

REACTIONS (2)
  - Fatigue [Recovered/Resolved]
  - Product use in unapproved indication [Unknown]
